FAERS Safety Report 19504052 (Version 4)
Quarter: 2022Q2

REPORT INFORMATION
  Report Type: Spontaneous
  Country: IN (occurrence: IN)
  Receive Date: 20210707
  Receipt Date: 20220523
  Transmission Date: 20220721
  Serious: Yes (Death, Other)
  Sender: FDA-Public Use
  Company Number: IN-PFIZER INC-2019455031

PATIENT
  Age: 36 Year
  Sex: Female

DRUGS (7)
  1. PALBOCICLIB [Suspect]
     Active Substance: PALBOCICLIB
     Indication: Breast cancer metastatic
     Dosage: 125 MG, CYCLIC (ONCE A DAY)
     Route: 048
     Dates: start: 20190820
  2. PALBOCICLIB [Suspect]
     Active Substance: PALBOCICLIB
     Dosage: 100 MG, CYCLIC (OD D 1-D21 7 DAYS OFF)
     Route: 048
  3. FULVESTRANT [Concomitant]
     Active Substance: FULVESTRANT
     Dosage: 500 MG
     Route: 030
     Dates: start: 20190820
  4. SHELCAL [CALCIUM CARBONATE;COLECALCIFEROL] [Concomitant]
     Dosage: 500 MG, 1X/DAY
  5. LEVIZA [Concomitant]
     Dosage: 500 MG
  6. LEVIZA [Concomitant]
     Dosage: 250 UNK
  7. CHOLECALCIFEROL [Concomitant]
     Active Substance: CHOLECALCIFEROL
     Dosage: 60000
     Route: 042

REACTIONS (6)
  - Death [Fatal]
  - Neutropenia [Recovered/Resolved]
  - Seizure [Unknown]
  - Haemoglobin decreased [Unknown]
  - Mucosal inflammation [Unknown]
  - Abdominal pain upper [Unknown]

NARRATIVE: CASE EVENT DATE: 20190101
